FAERS Safety Report 21898295 (Version 2)
Quarter: 2023Q1

REPORT INFORMATION
  Report Type: Spontaneous
  Country: AR (occurrence: AR)
  Receive Date: 20230123
  Receipt Date: 20230131
  Transmission Date: 20230418
  Serious: Yes (Death)
  Sender: FDA-Public Use
  Company Number: AR-OEPI8P-978

PATIENT

DRUGS (1)
  1. NERLYNX [Suspect]
     Active Substance: NERATINIB
     Indication: HER2 positive breast cancer
     Dosage: 240 MG, DAILY
     Route: 048
     Dates: start: 20211123

REACTIONS (1)
  - Death [Fatal]
